FAERS Safety Report 26180388 (Version 1)
Quarter: 2025Q4

REPORT INFORMATION
  Report Type: Spontaneous
  Country: CA (occurrence: CA)
  Receive Date: 20251219
  Receipt Date: 20251219
  Transmission Date: 20260118
  Serious: Yes (Other)
  Sender: TEVA
  Company Number: CA-TEVA-VS-3403385

PATIENT
  Age: 51 Year
  Sex: Female

DRUGS (3)
  1. CISPLATIN [Suspect]
     Active Substance: CISPLATIN
     Indication: Cholangiocarcinoma
     Route: 065
  2. DURVALUMAB [Suspect]
     Active Substance: DURVALUMAB
     Indication: Cholangiocarcinoma
     Route: 065
  3. GEMCITABINE HYDROCHLORIDE [Suspect]
     Active Substance: GEMCITABINE HYDROCHLORIDE
     Indication: Cholangiocarcinoma
     Route: 065

REACTIONS (3)
  - Cholangiocarcinoma [Unknown]
  - Malignant neoplasm progression [Unknown]
  - Off label use [Unknown]
